FAERS Safety Report 4443363-3 (Version None)
Quarter: 2004Q3

REPORT INFORMATION
  Report Type: 
  Country: None (occurrence: None)
  Receive Date: 20040901
  Receipt Date: 20040820
  Transmission Date: 20050211
  Serious: Yes (Other)
  Sender: FDA-Public Use
  Company Number: 2004229814US

PATIENT
  Age: 35 Year
  Sex: Female
  Weight: 60.3 kg

DRUGS (2)
  1. DEPO-PROVERA [Suspect]
     Indication: CONTRACEPTION
     Dosage: 150 MG,  LAST INJECTION, INTRAMUSCULAR
     Route: 030
     Dates: start: 19950601, end: 19950601
  2. DEPO-PROVERA [Suspect]
     Indication: CONTRACEPTION
     Dosage: 150 MG,  LAST INJECTION, INTRAMUSCULAR
     Route: 030
     Dates: start: 19990101, end: 19990101

REACTIONS (7)
  - ADENOMYOSIS [None]
  - AMENORRHOEA [None]
  - BLOOD URINE PRESENT [None]
  - DYSMENORRHOEA [None]
  - MENSTRUATION IRREGULAR [None]
  - PREMENSTRUAL SYNDROME [None]
  - SKIN DISCOLOURATION [None]
